FAERS Safety Report 5525937-1 (Version None)
Quarter: 2007Q4

REPORT INFORMATION
  Report Type: 
  Country: None (occurrence: None)
  Receive Date: 20071126
  Receipt Date: 20071116
  Transmission Date: 20080405
  Serious: Yes (Hospitalization)
  Sender: FDA-Public Use
  Company Number: US-SANOFI-SYNTHELABO-A03200700541

PATIENT
  Sex: Male
  Weight: 111.4 kg

DRUGS (17)
  1. PLAVIX [Suspect]
     Indication: ACUTE MYOCARDIAL INFARCTION
     Route: 048
     Dates: start: 20061101, end: 20061101
  2. PLAVIX [Suspect]
     Indication: ACUTE CORONARY SYNDROME
     Route: 048
     Dates: start: 20061101, end: 20061101
  3. PLAVIX [Suspect]
     Indication: MYOCARDIAL INFARCTION
     Route: 048
     Dates: start: 20061101, end: 20061101
  4. PLAVIX [Suspect]
     Route: 048
     Dates: start: 20061101, end: 20061103
  5. PLAVIX [Suspect]
     Route: 048
     Dates: start: 20061101, end: 20061103
  6. PLAVIX [Suspect]
     Route: 048
     Dates: start: 20061101, end: 20061103
  7. RAMIPRIL [Concomitant]
     Indication: CORONARY ARTERY DISEASE
     Dosage: UNK
     Route: 048
     Dates: start: 20061101, end: 20061101
  8. METOPROLOL [Concomitant]
     Indication: CORONARY ARTERY DISEASE
  9. FUROSEMIDE [Concomitant]
     Indication: CARDIAC FAILURE CONGESTIVE
  10. NITROGLYCERIN [Concomitant]
     Indication: CHEST PAIN
  11. LISINOPRIL [Concomitant]
     Indication: HYPERTENSION
  12. GEMFIBROZIL [Concomitant]
     Indication: DYSLIPIDAEMIA
     Dosage: UNK
     Route: 048
  13. ASPIRIN [Concomitant]
     Indication: CORONARY ARTERY DISEASE
     Dosage: UNK
     Route: 048
     Dates: start: 20061031, end: 20061101
  14. INTEGRILIN [Suspect]
     Indication: ACUTE MYOCARDIAL INFARCTION
     Dosage: 200 MCG/MIN CONTINOUS
     Route: 042
     Dates: start: 20061101, end: 20061101
  15. ENOXAPARIN SODIUM [Suspect]
     Indication: ACUTE MYOCARDIAL INFARCTION
     Route: 058
     Dates: start: 20061101, end: 20061101
  16. ENOXAPARIN SODIUM [Suspect]
     Route: 058
     Dates: start: 20061101, end: 20061101
  17. TOPROL-XL [Concomitant]
     Indication: DRUG USE FOR UNKNOWN INDICATION
     Dosage: UNK
     Route: 048

REACTIONS (3)
  - OVERDOSE [None]
  - POSTOPERATIVE WOUND INFECTION [None]
  - VASCULAR PSEUDOANEURYSM [None]
